FAERS Safety Report 7139431-8 (Version None)
Quarter: 2010Q4

REPORT INFORMATION
  Report Type: 
  Country: None (occurrence: None)
  Receive Date: 20101206
  Receipt Date: 20101124
  Transmission Date: 20110411
  Serious: Yes (Death, Other)
  Sender: FDA-Public Use
  Company Number: CN-PFIZER INC-2010164201

PATIENT
  Age: 76 Year
  Sex: Male

DRUGS (5)
  1. CORDARONE [Suspect]
     Indication: ARRHYTHMIA SUPRAVENTRICULAR
     Dosage: 600 MG, 1X/DAY
     Route: 048
     Dates: start: 20100129, end: 20100129
  2. CORDARONE [Suspect]
     Dosage: 400 MG, 1X/DAY
     Route: 048
     Dates: start: 20100130, end: 20100130
  3. CORDARONE [Suspect]
     Dosage: 200 MG, 1X/DAY
     Route: 048
     Dates: start: 20100131, end: 20100131
  4. CLOPIDOGREL SULFATE [Concomitant]
     Dosage: UNK
     Dates: start: 20100129
  5. ACTOVEGIN PRO INJECTIONE [Concomitant]
     Dosage: UNK
     Dates: start: 20100126, end: 20100126

REACTIONS (2)
  - DEATH [None]
  - MEDICATION ERROR [None]
